FAERS Safety Report 25618182 (Version 1)
Quarter: 2025Q3

REPORT INFORMATION
  Report Type: Spontaneous
  Country: EU (occurrence: EU)
  Receive Date: 20250729
  Receipt Date: 20250729
  Transmission Date: 20251020
  Serious: Yes (Other)
  Sender: VERTEX
  Company Number: EU-VERTEX PHARMACEUTICALS-2025-012327

PATIENT
  Age: 7 Year
  Sex: Male

DRUGS (2)
  1. ELEXACAFTOR\IVACAFTOR\TEZACAFTOR [Suspect]
     Active Substance: ELEXACAFTOR\IVACAFTOR\TEZACAFTOR
     Indication: Cystic fibrosis
     Dosage: TWO TABS (37.5 MG IVA/ 25 MG TEZA/ 50 MG ELEXA) IN MORNING
     Route: 048
     Dates: end: 202507
  2. KALYDECO [Suspect]
     Active Substance: IVACAFTOR
     Indication: Cystic fibrosis
     Dosage: 1 IVACAFTOR TABLET IN EVENING
     Route: 048

REACTIONS (2)
  - Nightmare [Not Recovered/Not Resolved]
  - Aggression [Not Recovered/Not Resolved]

NARRATIVE: CASE EVENT DATE: 20250101
